FAERS Safety Report 5722506-5 (Version None)
Quarter: 2008Q2

REPORT INFORMATION
  Report Type: 
  Country: None (occurrence: None)
  Receive Date: 20080429
  Receipt Date: 20071018
  Transmission Date: 20081010
  Serious: No
  Sender: FDA-Public Use
  Company Number: US-ASTRAZENECA-2007UW21101

PATIENT
  Age: 56 Year
  Sex: Female
  Weight: 65.8 kg

DRUGS (4)
  1. NEXIUM [Suspect]
     Indication: GASTROOESOPHAGEAL REFLUX DISEASE
     Route: 048
     Dates: start: 20070815
  2. PROZAC [Concomitant]
  3. BENADRYL [Concomitant]
  4. VITAMINS [Concomitant]

REACTIONS (3)
  - BREAST TENDERNESS [None]
  - URINE ABNORMALITY [None]
  - VAGINAL DISCHARGE [None]
